FAERS Safety Report 22194967 (Version 1)
Quarter: 2023Q2

REPORT INFORMATION
  Report Type: Spontaneous
  Country: DE (occurrence: DE)
  Receive Date: 20230411
  Receipt Date: 20230411
  Transmission Date: 20230722
  Serious: Yes (Other)
  Sender: FDA-Public Use
  Company Number: DE-BAYER-2023A045827

PATIENT
  Age: 63 Year
  Sex: Male

DRUGS (1)
  1. EYLEA [Suspect]
     Active Substance: AFLIBERCEPT
     Indication: Product used for unknown indication
     Dosage: UNK, SOLUTION FOR INJECTION; 40MG/ML
     Route: 031
     Dates: start: 20230328, end: 20230328

REACTIONS (2)
  - Blindness transient [Unknown]
  - Visual impairment [Unknown]

NARRATIVE: CASE EVENT DATE: 20230328
